FAERS Safety Report 4685905-9 (Version None)
Quarter: 2005Q2

REPORT INFORMATION
  Report Type: 
  Country: None (occurrence: None)
  Receive Date: 20050601
  Receipt Date: 20050601
  Transmission Date: 20051028
  Serious: Yes (Death, Hospitalization)
  Sender: FDA-Public Use
  Company Number: None

PATIENT
  Age: 56 Year
  Sex: Male
  Weight: 86.6 kg

DRUGS (10)
  1. BUSULFAN [Suspect]
     Indication: CHEMOTHERAPY
     Dosage: 68 QD INTRAVENOU
     Route: 042
     Dates: start: 20050309, end: 20050312
  2. CYTOXAN [Suspect]
     Indication: STEM CELL TRANSPLANT
     Dosage: 4900 QD INTRAVENOU
     Route: 042
     Dates: start: 20050313, end: 20050314
  3. ACYCLOVIR [Concomitant]
  4. CIPROFLOXACIN HCL [Concomitant]
  5. VANCOMYCIN [Concomitant]
  6. ABELCET [Concomitant]
  7. NADOLOL [Concomitant]
  8. ACTIGALL [Concomitant]
  9. TACROLIMUS [Concomitant]
  10. AMICAR [Concomitant]

REACTIONS (8)
  - BACTERAEMIA [None]
  - BLOOD BILIRUBIN ABNORMAL [None]
  - GASTROINTESTINAL HAEMORRHAGE [None]
  - GRAFT VERSUS HOST DISEASE [None]
  - INFECTION [None]
  - LIVER DISORDER [None]
  - LOSS OF CONSCIOUSNESS [None]
  - SKIN DISORDER [None]
